FAERS Safety Report 20047987 (Version 1)
Quarter: 2021Q4

REPORT INFORMATION
  Report Type: Spontaneous
  Country: US (occurrence: None)
  Receive Date: 20211109
  Receipt Date: 20211109
  Transmission Date: 20220303
  Serious: No
  Sender: FDA-Public Use
  Company Number: 2021A777231

PATIENT
  Age: 52 Year
  Sex: Male
  Weight: 85.3 kg

DRUGS (6)
  1. CRESTOR [Suspect]
     Active Substance: ROSUVASTATIN CALCIUM
     Route: 048
  2. CRESTOR [Suspect]
     Active Substance: ROSUVASTATIN CALCIUM
     Dosage: GENERIC
     Route: 048
  3. LIPITOR [Suspect]
     Active Substance: ATORVASTATIN CALCIUM
     Dosage: 20.0MG UNKNOWN
     Route: 065
  4. LISINOPRIL [Concomitant]
     Active Substance: LISINOPRIL
  5. ZOCOR [Concomitant]
     Active Substance: SIMVASTATIN
  6. ZETIA [Concomitant]
     Active Substance: EZETIMIBE

REACTIONS (5)
  - Muscle spasms [Unknown]
  - Low density lipoprotein increased [Unknown]
  - Myalgia [Unknown]
  - Pain [Unknown]
  - Asthenia [Unknown]
